FAERS Safety Report 23197168 (Version 1)
Quarter: 2023Q4

REPORT INFORMATION
  Report Type: Report from Study
  Country: CN (occurrence: CN)
  Receive Date: 20231117
  Receipt Date: 20231117
  Transmission Date: 20240110
  Serious: Yes (Hospitalization)
  Sender: FDA-Public Use
  Company Number: CN-PFIZER INC-202300135794

PATIENT
  Age: 65 Year
  Sex: Female
  Weight: 59 kg

DRUGS (41)
  1. ELRANATAMAB [Suspect]
     Active Substance: ELRANATAMAB
     Indication: Plasma cell myeloma
     Dosage: 12 MG, ONCE
     Route: 058
     Dates: start: 20230320, end: 20230320
  2. ELRANATAMAB [Suspect]
     Active Substance: ELRANATAMAB
     Dosage: 32 MG, ONCE
     Route: 058
     Dates: start: 20230324, end: 20230324
  3. DEXAMETHASONE [Suspect]
     Active Substance: DEXAMETHASONE
     Indication: Plasma cell myeloma
     Dosage: 20.00 MG, ONCE, DEXAMETHASONE SODIUM PHOSPHATE INJECTION
     Route: 042
     Dates: start: 20230317, end: 20230317
  4. DEXAMETHASONE [Suspect]
     Active Substance: DEXAMETHASONE
     Dosage: 20.00 MG, ONCE, DEXAMETHASONE SODIUM PHOSPHATE INJECTION
     Route: 042
     Dates: start: 20230323, end: 20230323
  5. DEXAMETHASONE [Suspect]
     Active Substance: DEXAMETHASONE
     Dosage: 20.00 MG, ONCE, DEXAMETHASONE SODIUM PHOSPHATE INJECTION
     Route: 042
     Dates: start: 20230324, end: 20230324
  6. DIPHENHYDRAMINE HYDROCHLORIDE [Suspect]
     Active Substance: DIPHENHYDRAMINE HYDROCHLORIDE
     Indication: Plasma cell myeloma
     Dosage: 25 MG, ONCE, DIPHENHYDRAMINE HYDROCHLORIDE TABLETS
     Route: 048
     Dates: start: 20230317, end: 20230317
  7. DIPHENHYDRAMINE HYDROCHLORIDE [Suspect]
     Active Substance: DIPHENHYDRAMINE HYDROCHLORIDE
     Dosage: 25 MG, ONCE, DIPHENHYDRAMINE HYDROCHLORIDE TABLETS
     Route: 048
     Dates: start: 20230323, end: 20230323
  8. DIPHENHYDRAMINE HYDROCHLORIDE [Suspect]
     Active Substance: DIPHENHYDRAMINE HYDROCHLORIDE
     Dosage: 25 MG, ONCE, DIPHENHYDRAMINE HYDROCHLORIDE TABLETS
     Route: 048
     Dates: start: 20230324, end: 20230324
  9. ACETAMINOPHEN [Suspect]
     Active Substance: ACETAMINOPHEN
     Indication: Plasma cell myeloma
     Dosage: 500.00 MG, ONCE, TABLET
     Route: 048
     Dates: start: 20230317, end: 20230317
  10. ACETAMINOPHEN [Suspect]
     Active Substance: ACETAMINOPHEN
     Dosage: 500.00 MG, ONCE, TABLET
     Route: 048
     Dates: start: 20230323, end: 20230323
  11. ACETAMINOPHEN [Suspect]
     Active Substance: ACETAMINOPHEN
     Dosage: 500.00 MG, ONCE, TABLET
     Route: 048
     Dates: start: 20230324, end: 20230324
  12. MOXIFLOXACIN HYDROCHLORIDE [Concomitant]
     Active Substance: MOXIFLOXACIN HYDROCHLORIDE\MOXIFLOXACIN HYDROCHLORIDE MONOHYDRATE
     Indication: Infection prophylaxis
     Dosage: 400 MG, 1X/DAY
     Route: 041
     Dates: start: 20230324, end: 20230326
  13. ACETAMINOPHEN\TRAMADOL HYDROCHLORIDE [Concomitant]
     Active Substance: ACETAMINOPHEN\TRAMADOL HYDROCHLORIDE
     Indication: Post herpetic neuralgia
     Dosage: 0.5 TABLET, 2X/DAY
     Route: 048
     Dates: start: 202301, end: 20230319
  14. ACETAMINOPHEN\TRAMADOL HYDROCHLORIDE [Concomitant]
     Active Substance: ACETAMINOPHEN\TRAMADOL HYDROCHLORIDE
     Dosage: 0.5 TABLET, ONCE
     Route: 048
     Dates: start: 20230320, end: 20230320
  15. ACETAMINOPHEN\TRAMADOL HYDROCHLORIDE [Concomitant]
     Active Substance: ACETAMINOPHEN\TRAMADOL HYDROCHLORIDE
     Dosage: 1 TABLET, ONCE
     Route: 048
     Dates: start: 20230320, end: 20230320
  16. ACETAMINOPHEN\TRAMADOL HYDROCHLORIDE [Concomitant]
     Active Substance: ACETAMINOPHEN\TRAMADOL HYDROCHLORIDE
     Dosage: 1 TABLET, 2X/DAY
     Route: 048
     Dates: start: 20230321, end: 20230420
  17. POTASSIUM CHLORIDE [Concomitant]
     Active Substance: POTASSIUM CHLORIDE
     Indication: Prophylaxis
     Dosage: 1 G, 1X/DAY
     Route: 048
     Dates: start: 20230322, end: 20230322
  18. POTASSIUM CHLORIDE [Concomitant]
     Active Substance: POTASSIUM CHLORIDE
     Dosage: 1 G, 2X/DAY
     Route: 048
     Dates: start: 20230323, end: 20230407
  19. SODIUM BICARBONATE [Concomitant]
     Active Substance: SODIUM BICARBONATE
     Indication: Prophylaxis
     Dosage: 4 G, 1X/DAY
     Route: 041
     Dates: start: 20230317, end: 20230406
  20. FEBUXOSTAT [Concomitant]
     Active Substance: FEBUXOSTAT
     Indication: Hyperuricaemia
     Dosage: 40 MG, 1X/DAY
     Route: 048
     Dates: start: 20230317, end: 20230407
  21. PREGABALIN [Concomitant]
     Active Substance: PREGABALIN
     Indication: Post herpetic neuralgia
     Dosage: 75 MG, 2X/DAY
     Route: 048
     Dates: start: 202301, end: 20230421
  22. INSULIN DETEMIR [Concomitant]
     Active Substance: INSULIN DETEMIR
     Indication: Diabetes mellitus
     Dosage: 10 IU, 1X/DAY
     Route: 058
     Dates: start: 20230324
  23. INSULIN DETEMIR [Concomitant]
     Active Substance: INSULIN DETEMIR
     Dosage: 4 IU, ONCE
     Route: 058
     Dates: start: 20230324, end: 20230324
  24. INSULIN DETEMIR [Concomitant]
     Active Substance: INSULIN DETEMIR
     Dosage: 6 IU, ONCE
     Route: 058
     Dates: start: 20230325, end: 20230325
  25. INSULIN NOS [Concomitant]
     Active Substance: INSULIN NOS
     Indication: Diabetes mellitus
     Dosage: 10 IU, PRN
     Route: 058
     Dates: start: 2020, end: 20230317
  26. INSULIN NOS [Concomitant]
     Active Substance: INSULIN NOS
     Dosage: 4 IU, 1X/DAY
     Route: 041
     Dates: start: 20230317, end: 20230324
  27. INSULIN NOS [Concomitant]
     Active Substance: INSULIN NOS
     Dosage: 4 IU, 1X/DAY
     Route: 041
     Dates: start: 20230317, end: 20230406
  28. INSULIN NOS [Concomitant]
     Active Substance: INSULIN NOS
     Dosage: 5 IU, ONCE
     Route: 058
     Dates: start: 20230321, end: 20230321
  29. INSULIN NOS [Concomitant]
     Active Substance: INSULIN NOS
     Dosage: 10 IU, ONCE
     Route: 058
     Dates: start: 20230323, end: 20230323
  30. INSULIN NOS [Concomitant]
     Active Substance: INSULIN NOS
     Dosage: 6 IU, ONCE
     Route: 058
     Dates: start: 20230324, end: 20230324
  31. INSULIN NOS [Concomitant]
     Active Substance: INSULIN NOS
     Dosage: 6 IU, ONCE
     Route: 058
     Dates: start: 20230325, end: 20230325
  32. FENTANYL [Concomitant]
     Active Substance: FENTANYL\FENTANYL CITRATE
     Indication: Post herpetic neuralgia
     Dosage: 1 TABLET, 1X/DAY, TRANSDERMAL PATCHES
     Route: 003
     Dates: start: 20230323, end: 20230407
  33. SODIUM CHLORIDE [Concomitant]
     Active Substance: SODIUM CHLORIDE
     Indication: Fluid replacement
     Dosage: 20 ML, ONCE
     Route: 048
     Dates: start: 20230326, end: 20230326
  34. ORYCTOLAGUS CUNICULUS SKIN [Concomitant]
     Active Substance: ORYCTOLAGUS CUNICULUS SKIN
     Indication: Post herpetic neuralgia
     Dosage: 7.2 IU, 1X/DAY
     Route: 041
     Dates: start: 20230325, end: 20230406
  35. DEXTROSE\SODIUM CHLORIDE [Concomitant]
     Active Substance: DEXTROSE\SODIUM CHLORIDE
     Indication: Fluid replacement
     Dosage: 500 ML, 1X/DAY
     Route: 041
     Dates: start: 20230317, end: 20230324
  36. DENOSUMAB [Concomitant]
     Active Substance: DENOSUMAB
     Indication: Hypercalcaemia
     Dosage: 20 MG, ONCE
     Route: 058
     Dates: start: 20230317, end: 20230317
  37. LIDOCAINE [Concomitant]
     Active Substance: LIDOCAINE
     Indication: Post herpetic neuralgia
     Dosage: 1 PG, 1X/DAY, CATAPLASMS
     Route: 003
     Dates: start: 202301, end: 20230407
  38. DEXTROSE [Concomitant]
     Active Substance: DEXTROSE\DEXTROSE MONOHYDRATE
     Indication: Substance abuser
     Dosage: 420 ML, 1X/DAY
     Route: 041
     Dates: start: 20230317, end: 20230406
  39. FUROSEMIDE [Concomitant]
     Active Substance: FUROSEMIDE
     Indication: Prophylaxis
     Dosage: 20 MG, 1X/DAY
     Route: 048
     Dates: start: 20230317, end: 20230407
  40. CALCIUM GLUCONATE [Concomitant]
     Active Substance: CALCIUM GLUCONATE
     Indication: Hypocalcaemia
     Dosage: 2 G, ONCE
     Route: 041
     Dates: start: 20230326, end: 20230326
  41. ACETAMINOPHEN [Concomitant]
     Active Substance: ACETAMINOPHEN
     Indication: Infection
     Dosage: 0.5 G, 2X/DAY
     Route: 048
     Dates: start: 20230326, end: 20230326

REACTIONS (1)
  - Bacterial infection [Recovered/Resolved]

NARRATIVE: CASE EVENT DATE: 20230326
